FAERS Safety Report 5193891-0 (Version None)
Quarter: 2006Q4

REPORT INFORMATION
  Report Type: 
  Country: None (occurrence: None)
  Receive Date: 20061228
  Receipt Date: 20061215
  Transmission Date: 20070319
  Serious: Yes (Hospitalization)
  Sender: FDA-Public Use
  Company Number: RU-ROCHE-475437

PATIENT
  Age: 16 Year
  Sex: Male

DRUGS (1)
  1. ROACCUTANE [Suspect]
     Indication: ACNE
     Dosage: DOSAGE REGIMEN REPORTED AS 30 MG/ 70 RG DAILY I.E. 0.43 MG/KG.
     Route: 048
     Dates: start: 20061125, end: 20061205

REACTIONS (3)
  - ARTHRALGIA [None]
  - MYALGIA [None]
  - POLYMYOSITIS [None]
